FAERS Safety Report 5091724-4 (Version None)
Quarter: 2006Q3

REPORT INFORMATION
  Report Type: 
  Country: None (occurrence: None)
  Receive Date: 20060824
  Receipt Date: 20060811
  Transmission Date: 20061208
  Serious: Yes (Hospitalization)
  Sender: FDA-Public Use
  Company Number: 2006JP002742

PATIENT
  Age: 64 Year
  Sex: Male

DRUGS (3)
  1. PROGRAF [Suspect]
     Indication: RENAL TRANSPLANT
     Dates: start: 20040101
  2. MYCOPHENOLATE MOFETIL [Concomitant]
  3. PREDNISOLONE [Concomitant]

REACTIONS (4)
  - CALCULUS URETERIC [None]
  - COMPLICATIONS OF TRANSPLANTED KIDNEY [None]
  - HYDRONEPHROSIS [None]
  - NEPHROLITHIASIS [None]
